FAERS Safety Report 7132263-6 (Version None)
Quarter: 2010Q4

REPORT INFORMATION
  Report Type: 
  Country: None (occurrence: None)
  Receive Date: 20101202
  Receipt Date: 20101118
  Transmission Date: 20110411
  Serious: Yes (Hospitalization, Other)
  Sender: FDA-Public Use
  Company Number: PHHY2008GB09281

PATIENT
  Sex: Male

DRUGS (9)
  1. CLOZARIL [Suspect]
     Indication: SCHIZOPHRENIA
     Dosage: 500 MG, QD
     Dates: start: 19990120
  2. CLOZARIL [Suspect]
     Dosage: 350 MG/DAY
     Dates: start: 20080530
  3. CLOZARIL [Suspect]
     Dosage: 150 MG MANE, 200 MG NOCTE
  4. CLOZARIL [Suspect]
     Dosage: 200MG MANE, 300MG NOCTE
  5. CLOZARIL [Suspect]
     Dosage: 350 MG DAILY
     Route: 048
     Dates: end: 20100713
  6. CLOZARIL [Suspect]
     Dosage: 175 MG (50 MG MANE, 125 MG NOCTE)
     Route: 048
     Dates: end: 20101007
  7. CLOZARIL [Suspect]
     Dosage: 100 MG DAILY
     Route: 048
  8. SERTRALINE HYDROCHLORIDE [Concomitant]
     Indication: DEPRESSION
     Dosage: 150 MG PER DAY
  9. SERTRALINE HYDROCHLORIDE [Concomitant]
     Dosage: 200 MG, QD

REACTIONS (5)
  - ANTIPSYCHOTIC DRUG LEVEL INCREASED [None]
  - BRAIN NEOPLASM [None]
  - BRAIN SCAN ABNORMAL [None]
  - GRAND MAL CONVULSION [None]
  - TACHYCARDIA [None]
